FAERS Safety Report 8619040-1 (Version None)
Quarter: 2012Q3

REPORT INFORMATION
  Report Type: 
  Country: None (occurrence: None)
  Receive Date: 20120824
  Receipt Date: 20120816
  Transmission Date: 20120928
  Serious: Yes (Hospitalization)
  Sender: FDA-Public Use
  Company Number: US-BAYER-2012-019568

PATIENT
  Age: 25 Year
  Sex: Female
  Weight: 81.633 kg

DRUGS (8)
  1. DUAC [Concomitant]
     Dosage: 1-5%
     Route: 061
     Dates: start: 20090813, end: 20110211
  2. KETOCONAZOLE [Concomitant]
     Dosage: 2 %, BID
     Route: 061
     Dates: start: 20110211
  3. TAZORAC [Concomitant]
     Dosage: 0.1 %, HS
     Route: 061
     Dates: start: 20090813, end: 20110211
  4. FOLIC ACID [Concomitant]
     Dosage: 400 MCG, DAILY
  5. YAZ [Suspect]
     Indication: ACNE
     Dosage: UNK
     Dates: start: 20091001, end: 20110401
  6. SOLODYN [Concomitant]
     Dosage: 80 MG, UNK  DAILY
     Route: 048
     Dates: start: 20110214
  7. MINOCIN [Concomitant]
     Indication: ACNE
  8. HYDROQUINONE [Concomitant]
     Dosage: APPLY TO DARK SPOTS AT BEDTIME [PER PR], TWICE DAILY [PER MR]
     Route: 061
     Dates: start: 20080520, end: 20110211

REACTIONS (7)
  - PAIN [None]
  - PULMONARY EMBOLISM [None]
  - INJURY [None]
  - ANXIETY [None]
  - GENERAL PHYSICAL HEALTH DETERIORATION [None]
  - EMOTIONAL DISTRESS [None]
  - MYOCARDIAL STRAIN [None]
